FAERS Safety Report 12929056 (Version 2)
Quarter: 2016Q4

REPORT INFORMATION
  Report Type: Spontaneous
  Country: IT (occurrence: IT)
  Receive Date: 20161110
  Receipt Date: 20161116
  Transmission Date: 20170207
  Serious: Yes (Death)
  Sender: FDA-Public Use
  Company Number: IT-TEVA-710323ACC

PATIENT
  Age: 61 Year
  Sex: Male

DRUGS (3)
  1. FUROSEMIDE. [Suspect]
     Active Substance: FUROSEMIDE
     Indication: ACUTE PROMYELOCYTIC LEUKAEMIA
  2. TRETINOIN. [Suspect]
     Active Substance: TRETINOIN
     Indication: ACUTE PROMYELOCYTIC LEUKAEMIA
  3. IDARUBICIN [Suspect]
     Active Substance: IDARUBICIN
     Indication: ACUTE PROMYELOCYTIC LEUKAEMIA
     Route: 041

REACTIONS (9)
  - Drug ineffective [Fatal]
  - Mucosal inflammation [Fatal]
  - Pulmonary oedema [Fatal]
  - Ejection fraction decreased [Fatal]
  - Dyspnoea [Fatal]
  - Neutropenia [Fatal]
  - Sinus tachycardia [Fatal]
  - Ventricular fibrillation [Fatal]
  - Cardiogenic shock [Fatal]
